FAERS Safety Report 14760158 (Version 2)
Quarter: 2018Q2

REPORT INFORMATION
  Report Type: Report from Study
  Country: CH (occurrence: CH)
  Receive Date: 20180413
  Receipt Date: 20180420
  Transmission Date: 20180711
  Serious: Yes (Death, Other)
  Sender: FDA-Public Use
  Company Number: CH-BRISTOL-MYERS SQUIBB COMPANY-BMS-2018-032084

PATIENT
  Age: 64 Year
  Sex: Male
  Weight: 85.5 kg

DRUGS (15)
  1. CALCIMAGON                         /07357001/ [Concomitant]
     Indication: PREMEDICATION
     Dosage: 1 TAB, UNK
     Route: 065
  2. VITAMIN D3 [Concomitant]
     Active Substance: CHOLECALCIFEROL
     Indication: PREMEDICATION
     Dosage: 20 ML, UNK
     Route: 065
     Dates: start: 20170316
  3. MOVICOL [Concomitant]
     Active Substance: POLYETHYLENE GLYCOL 3350\POTASSIUM CHLORIDE\SODIUM BICARBONATE\SODIUM CHLORIDE
     Indication: PRODUCT USED FOR UNKNOWN INDICATION
     Dosage: 1 DF, UNK
     Route: 065
     Dates: start: 20170324
  4. ANDREAFOL [Concomitant]
     Indication: PREMEDICATION
     Dosage: 400 ?G, UNK
     Route: 065
     Dates: start: 20170316
  5. NIVOLUMAB [Suspect]
     Active Substance: NIVOLUMAB
     Indication: NON-SMALL CELL LUNG CANCER
     Dosage: 360 MG, UNK
     Route: 042
     Dates: start: 20170317, end: 20170518
  6. METOPROLOL. [Concomitant]
     Active Substance: METOPROLOL
     Indication: PREMEDICATION
     Dosage: 50 MG, UNK
     Route: 065
  7. DENOSUMAB [Concomitant]
     Active Substance: DENOSUMAB
     Indication: PREMEDICATION
     Dosage: 120 MG, Q4WK
     Route: 065
     Dates: start: 20170206
  8. PRAVASTATIN. [Concomitant]
     Active Substance: PRAVASTATIN
     Indication: PREMEDICATION
     Dosage: 20 MG, UNK
     Route: 065
  9. PANTOPRAZOLE [Concomitant]
     Active Substance: PANTOPRAZOLE
     Indication: PREMEDICATION
     Dosage: 20 MG, UNK
     Route: 065
  10. SIRDALUD [Concomitant]
     Active Substance: TIZANIDINE
     Indication: PRODUCT USED FOR UNKNOWN INDICATION
     Dosage: 2 MG, UNK
     Route: 065
     Dates: start: 20170428
  11. CLEXANE [Concomitant]
     Active Substance: ENOXAPARIN SODIUM
     Indication: PRODUCT USED FOR UNKNOWN INDICATION
     Dosage: 40 MG, UNK
     Route: 065
     Dates: start: 20170609
  12. PEMETREXED DISODIUM [Suspect]
     Active Substance: PEMETREXED DISODIUM
     Indication: NON-SMALL CELL LUNG CANCER
     Dosage: 970 MG, UNK
     Route: 042
     Dates: start: 20170317, end: 20170518
  13. CARBOPLATIN. [Suspect]
     Active Substance: CARBOPLATIN
     Indication: NON-SMALL CELL LUNG CANCER
     Dosage: 660 MG, UNK
     Route: 042
     Dates: start: 20170317, end: 20170518
  14. ASPIRIN                            /00002701/ [Concomitant]
     Active Substance: ASPIRIN
     Indication: PREMEDICATION
     Dosage: 100 MG, UNK
     Route: 065
  15. NOVALGIN                           /00169801/ [Concomitant]
     Active Substance: ACETAMINOPHEN\CAFFEINE\PROPYPHENAZONE
     Indication: PRODUCT USED FOR UNKNOWN INDICATION
     Dosage: 6 G, UNK
     Route: 065
     Dates: start: 20170608

REACTIONS (1)
  - Pneumonitis [Fatal]

NARRATIVE: CASE EVENT DATE: 20180327
